FAERS Safety Report 7002080-6 (Version None)
Quarter: 2010Q3

REPORT INFORMATION
  Report Type: 
  Country: None (occurrence: None)
  Receive Date: 20100920
  Receipt Date: 20100628
  Transmission Date: 20110219
  Serious: Yes (Other)
  Sender: FDA-Public Use
  Company Number: US-ASTRAZENECA-2007UW18316

PATIENT
  Age: 51 Year
  Sex: Female
  Weight: 70.3 kg

DRUGS (25)
  1. SEROQUEL [Suspect]
     Indication: BIPOLAR DISORDER
     Route: 048
     Dates: start: 20030101
  2. SEROQUEL [Suspect]
     Indication: DEPRESSION
     Route: 048
     Dates: start: 20030101
  3. SEROQUEL [Suspect]
     Indication: ANXIETY DISORDER
     Route: 048
     Dates: start: 20030101
  4. SEROQUEL [Suspect]
     Route: 048
     Dates: start: 20050411, end: 20060715
  5. SEROQUEL [Suspect]
     Route: 048
     Dates: start: 20050411, end: 20060715
  6. SEROQUEL [Suspect]
     Route: 048
     Dates: start: 20050411, end: 20060715
  7. ZYPREXA [Suspect]
     Indication: BIPOLAR DISORDER
     Dates: start: 19980101, end: 20060401
  8. ZYPREXA [Suspect]
     Indication: DEPRESSION
     Dates: start: 19980101, end: 20060401
  9. ZYPREXA [Suspect]
     Indication: ANXIETY DISORDER
     Dates: start: 19980101, end: 20060401
  10. ZYPREXA [Suspect]
     Dosage: STRENGTH-10MG, 20MG DOSE-10-20 MG DAILY
     Dates: start: 20000721, end: 20030324
  11. ZYPREXA [Suspect]
     Dosage: STRENGTH-10MG, 20MG DOSE-10-20 MG DAILY
     Dates: start: 20000721, end: 20030324
  12. ZYPREXA [Suspect]
     Dosage: STRENGTH-10MG, 20MG DOSE-10-20 MG DAILY
     Dates: start: 20000721, end: 20030324
  13. NAPROSYN [Concomitant]
     Dates: start: 20000224
  14. RESTORIL [Concomitant]
     Dates: start: 20060406
  15. PAMELOR [Concomitant]
     Dosage: STRENGTH-25MG, 50MG, 75MG DOSE-25-75MG DAILY
     Dates: start: 20001121
  16. SYNTHROID [Concomitant]
     Dates: start: 20050411
  17. WELLBUTRIN SR [Concomitant]
     Indication: DEPRESSION
     Dosage: STRENGTH-100MG, 150MG, 200MG DOSE-200-450 MG DAILY
     Route: 048
     Dates: start: 20000425, end: 20050101
  18. WELLBUTRIN SR [Concomitant]
     Indication: BIPOLAR DISORDER
     Dosage: STRENGTH-100MG, 150MG, 200MG DOSE-200-450 MG DAILY
     Route: 048
     Dates: start: 20000425, end: 20050101
  19. ESKALITH CR [Concomitant]
     Dates: start: 20050411
  20. KLONOPIN [Concomitant]
     Dosage: STRENGTH-1MG, 2MG DOSE-1-2MG DAILY
     Dates: start: 20000425, end: 20030101
  21. LITHOBID [Concomitant]
     Indication: DEPRESSION
     Dates: start: 20000101, end: 20010101
  22. LITHOBID [Concomitant]
     Indication: BIPOLAR DISORDER
     Dates: start: 20000101, end: 20010101
  23. XANAX [Concomitant]
     Indication: ANXIETY DISORDER
     Dates: start: 20020101, end: 20030101
  24. EFFEXOR [Concomitant]
     Indication: ANXIETY DISORDER
     Dates: start: 20000101
  25. PAXIL [Concomitant]
     Dates: start: 20000101

REACTIONS (3)
  - DIABETES MELLITUS [None]
  - DIABETIC KETOACIDOSIS [None]
  - TYPE 2 DIABETES MELLITUS [None]
